FAERS Safety Report 5940592-4 (Version None)
Quarter: 2008Q4

REPORT INFORMATION
  Report Type: 
  Country: None (occurrence: None)
  Receive Date: 20081104
  Receipt Date: 20081031
  Transmission Date: 20090506
  Serious: Yes (Life-Threatening, Other)
  Sender: FDA-Public Use
  Company Number: GB-ASTRAZENECA-2008AP08476

PATIENT
  Age: 61 Year
  Sex: Male
  Weight: 54.3 kg

DRUGS (19)
  1. MEROPENEM [Suspect]
     Route: 042
     Dates: start: 20080501, end: 20080508
  2. AMBISOME [Suspect]
     Indication: FEBRILE NEUTROPENIA
     Route: 042
     Dates: start: 20080506, end: 20080510
  3. AMBISOME [Suspect]
     Indication: FUNGAL INFECTION
     Route: 042
     Dates: start: 20080506, end: 20080510
  4. AMBISOME [Suspect]
     Route: 042
     Dates: start: 20080511, end: 20080514
  5. AMBISOME [Suspect]
     Route: 042
     Dates: start: 20080511, end: 20080514
  6. CYCLOCIDE [Suspect]
     Route: 065
  7. DAUNOMYCIN [Suspect]
     Route: 065
  8. VANCOMYCIN HYDROCHLORIDE [Suspect]
     Route: 042
     Dates: start: 20080504, end: 20080511
  9. FINIBAX [Suspect]
     Route: 042
     Dates: start: 20080509, end: 20080514
  10. FUNGUARD [Concomitant]
     Dates: start: 20080501, end: 20080505
  11. CONCENTRATED HUMAN RED BLOOD [Concomitant]
     Dates: start: 20080502, end: 20080514
  12. CONCENTRATED HUMAN RED BLOOD [Concomitant]
     Dates: start: 20080506, end: 20080513
  13. CONCENTRATED PLATELETS [Concomitant]
     Dates: start: 20080502, end: 20080510
  14. CONCENTRATED PLATELETS [Concomitant]
     Dates: start: 20080506, end: 20080514
  15. IMMUNE GLOBULIN (HUMAN) [Concomitant]
     Dates: start: 20080505, end: 20080507
  16. FAMOTIDINE [Concomitant]
     Dates: start: 20080506, end: 20080510
  17. GRAN [Concomitant]
     Dates: start: 20080507, end: 20080514
  18. INOVAN [Concomitant]
     Dates: start: 20080508, end: 20080513
  19. OMEPRAL [Concomitant]
     Dates: start: 20080511, end: 20080516

REACTIONS (6)
  - BLOOD CHOLESTEROL DECREASED [None]
  - BLOOD CREATININE INCREASED [None]
  - HIGH DENSITY LIPOPROTEIN DECREASED [None]
  - HYPERBILIRUBINAEMIA [None]
  - HYPERMAGNESAEMIA [None]
  - NEUTROPHIL COUNT DECREASED [None]
